FAERS Safety Report 12416922 (Version 1)
Quarter: 2016Q2

REPORT INFORMATION
  Report Type: Spontaneous
  Country: SE (occurrence: SE)
  Receive Date: 20160530
  Receipt Date: 20160530
  Transmission Date: 20160815
  Serious: Yes (Other)
  Sender: FDA-Public Use
  Company Number: SE-JNJFOC-20140302955

PATIENT
  Age: 47 Year
  Sex: Female

DRUGS (1)
  1. CONCERTA [Suspect]
     Active Substance: METHYLPHENIDATE HYDROCHLORIDE
     Indication: ATTENTION DEFICIT/HYPERACTIVITY DISORDER
     Dosage: 1 TABLET OF 36 MG AND 2 TABLETS OF 18 MG IN THE MORNING
     Route: 048

REACTIONS (2)
  - Cardiac flutter [Not Recovered/Not Resolved]
  - Lactose intolerance [Not Recovered/Not Resolved]
